FAERS Safety Report 14994297 (Version 1)
Quarter: 2018Q2

REPORT INFORMATION
  Report Type: Spontaneous
  Country: US (occurrence: US)
  Receive Date: 20180521
  Receipt Date: 20180521
  Transmission Date: 20180711
  Serious: Yes (Hospitalization)
  Sender: FDA-Public Use
  Company Number: None

PATIENT
  Age: 55 Year
  Sex: Male
  Weight: 88 kg

DRUGS (4)
  1. DOXYCYCLINE. [Concomitant]
     Active Substance: DOXYCYCLINE
     Dates: start: 20171009, end: 20171010
  2. FUROSEMIDE. [Concomitant]
     Active Substance: FUROSEMIDE
     Dates: start: 20171012, end: 20171016
  3. CEFTRIAXONE. [Concomitant]
     Active Substance: CEFTRIAXONE
     Dates: start: 20171010, end: 20171016
  4. PHENOBARBITAL. [Suspect]
     Active Substance: PHENOBARBITAL
     Indication: ALCOHOL WITHDRAWAL SYNDROME
     Dates: start: 20171009, end: 20171010

REACTIONS (8)
  - Drug hypersensitivity [None]
  - Rash erythematous [None]
  - Hyperthermia [None]
  - Blister [None]
  - Erythema [None]
  - Skin warm [None]
  - Stevens-Johnson syndrome [None]
  - Toxic epidermal necrolysis [None]

NARRATIVE: CASE EVENT DATE: 20171012
